FAERS Safety Report 23105018 (Version 1)
Quarter: 2023Q4

REPORT INFORMATION
  Report Type: Spontaneous
  Country: US (occurrence: None)
  Receive Date: 20231023
  Receipt Date: 20231023
  Transmission Date: 20240109
  Serious: Yes (Hospitalization)
  Sender: FDA-Public Use
  Company Number: None

PATIENT
  Age: 71 Year
  Sex: Male
  Weight: 73 kg

DRUGS (1)
  1. BACLOFEN [Suspect]
     Active Substance: BACLOFEN
     Dates: start: 20220907, end: 20221025

REACTIONS (4)
  - Anxiety [None]
  - Delirium [None]
  - Memory impairment [None]
  - Overdose [None]

NARRATIVE: CASE EVENT DATE: 20230209
